FAERS Safety Report 11377124 (Version 1)
Quarter: 2015Q3

REPORT INFORMATION
  Report Type: Spontaneous
  Country: US (occurrence: US)
  Receive Date: 20150813
  Receipt Date: 20150813
  Transmission Date: 20151125
  Serious: No
  Sender: FDA-Public Use
  Company Number: US-GALDERMA-US14004759

PATIENT
  Age: 38 Year
  Sex: Female

DRUGS (4)
  1. CYMBALTA [Concomitant]
     Active Substance: DULOXETINE HYDROCHLORIDE
     Dates: start: 201407
  2. METROGEL [Suspect]
     Active Substance: METRONIDAZOLE
     Indication: BLEPHARITIS
     Dosage: 1%
     Route: 061
     Dates: start: 20141221
  3. LOPROX CREAM (CICLOPIROX CREAM) [Concomitant]
     Indication: FUNGAL INFECTION
     Route: 061
     Dates: start: 20141221
  4. UNSPECIFIED ANTIFUNGAL MEDICATION [Concomitant]
     Indication: FUNGAL INFECTION
     Route: 048
     Dates: start: 20141221

REACTIONS (4)
  - Condition aggravated [Not Recovered/Not Resolved]
  - Rash [Not Recovered/Not Resolved]
  - Inappropriate schedule of drug administration [Not Recovered/Not Resolved]
  - Product use issue [Not Recovered/Not Resolved]

NARRATIVE: CASE EVENT DATE: 20141221
